FAERS Safety Report 20507701 (Version 1)
Quarter: 2022Q1

REPORT INFORMATION
  Report Type: Other
  Country: US (occurrence: None)
  Receive Date: 20220223
  Receipt Date: 20220223
  Transmission Date: 20220423
  Serious: No
  Sender: FDA-Public Use
  Company Number: US-ROCHE-3027173

PATIENT
  Age: 45 Year
  Sex: Male

DRUGS (1)
  1. OCREVUS [Suspect]
     Active Substance: OCRELIZUMAB
     Indication: Relapsing-remitting multiple sclerosis
     Dosage: DATE OF TREATMENT: 08/MAY/2019, 11/SEP/2019, 29/OCT/2019, 14/APR/2020, 29/SEP/2020, 17/MAY/2021
     Route: 065
     Dates: start: 20190424

REACTIONS (3)
  - COVID-19 [Recovering/Resolving]
  - Fatigue [Not Recovered/Not Resolved]
  - Feeling abnormal [Not Recovered/Not Resolved]

NARRATIVE: CASE EVENT DATE: 20211220
